FAERS Safety Report 13078089 (Version 1)
Quarter: 2017Q1

REPORT INFORMATION
  Report Type: Spontaneous
  Country: SE (occurrence: SE)
  Receive Date: 20170102
  Receipt Date: 20170102
  Transmission Date: 20170428
  Serious: Yes (Hospitalization)
  Sender: FDA-Public Use
  Company Number: SE-CONCORDIA PHARMACEUTICALS INC.-GSH201612-006576

PATIENT
  Age: 80 Year
  Sex: Female

DRUGS (2)
  1. WARAN [Suspect]
     Active Substance: WARFARIN SODIUM
  2. PREDNISOLONE. [Suspect]
     Active Substance: PREDNISOLONE

REACTIONS (4)
  - Drug interaction [Unknown]
  - Pain in extremity [Unknown]
  - Haematoma [Unknown]
  - International normalised ratio abnormal [Unknown]
